FAERS Safety Report 5871700-1 (Version None)
Quarter: 2008Q3

REPORT INFORMATION
  Report Type: 
  Country: None (occurrence: None)
  Receive Date: 20080904
  Receipt Date: 20080904
  Transmission Date: 20090109
  Serious: Yes (Other)
  Sender: FDA-Public Use
  Company Number: None

PATIENT
  Sex: Female
  Weight: 54.4316 kg

DRUGS (1)
  1. COMBIPATCH [Suspect]
     Indication: HORMONE REPLACEMENT THERAPY
     Dosage: 1 PATCH TWICE WEEKLY TRANSDERMAL
     Route: 062
     Dates: start: 20080818, end: 20080903

REACTIONS (1)
  - DRUG INEFFECTIVE [None]
